FAERS Safety Report 25411882 (Version 1)
Quarter: 2025Q2

REPORT INFORMATION
  Report Type: Spontaneous
  Country: JP (occurrence: JP)
  Receive Date: 20250609
  Receipt Date: 20250609
  Transmission Date: 20250717
  Serious: Yes (Other)
  Sender: IPCA
  Company Number: JP-IPCA LABORATORIES LIMITED-IPC-2025-JP-001480

PATIENT

DRUGS (10)
  1. PREGABALIN [Suspect]
     Active Substance: PREGABALIN
     Indication: Scoliosis
     Route: 065
  2. PREGABALIN [Suspect]
     Active Substance: PREGABALIN
     Indication: Neuralgia
  3. OLANZAPINE [Suspect]
     Active Substance: OLANZAPINE
     Indication: Dementia
     Route: 065
  4. ACETAMINOPHEN [Suspect]
     Active Substance: ACETAMINOPHEN
     Indication: Back pain
     Route: 065
  5. TRAMADOL [Suspect]
     Active Substance: TRAMADOL
     Indication: Back pain
     Route: 065
  6. DONEPEZIL [Suspect]
     Active Substance: DONEPEZIL
     Indication: Dementia
     Route: 065
  7. MIROGABALIN [Suspect]
     Active Substance: MIROGABALIN
     Indication: Scoliosis
     Route: 065
  8. MIROGABALIN [Suspect]
     Active Substance: MIROGABALIN
     Indication: Neuralgia
  9. HERBALS [Suspect]
     Active Substance: HERBALS
     Indication: Dementia
     Route: 065
  10. ARIPIPRAZOLE [Suspect]
     Active Substance: ARIPIPRAZOLE
     Indication: Dementia
     Route: 065

REACTIONS (6)
  - Substance-induced psychotic disorder [Recovered/Resolved]
  - Hallucination [Recovered/Resolved]
  - Dementia with Lewy bodies [Recovered/Resolved]
  - Delusion [Recovered/Resolved]
  - Irritability [Recovered/Resolved]
  - Drug ineffective [Unknown]
